FAERS Safety Report 5192129-8 (Version None)
Quarter: 2006Q4

REPORT INFORMATION
  Report Type: 
  Country: None (occurrence: None)
  Receive Date: 20061220
  Receipt Date: 20061205
  Transmission Date: 20070319
  Serious: Yes (Hospitalization)
  Sender: FDA-Public Use
  Company Number: 2006SP007747

PATIENT
  Sex: Male
  Weight: 97 kg

DRUGS (3)
  1. RIBAVIRIN [Suspect]
     Indication: HEPATITIS C
     Dosage: 600 MG;BID;PO
     Route: 048
     Dates: start: 20060630, end: 20061116
  2. VIRAFERONPEG [Suspect]
     Indication: HEPATITIS C
     Dosage: 150 MG; SC
     Route: 058
     Dates: start: 20060630
  3. ACETAMINOPHEN [Concomitant]

REACTIONS (1)
  - PORPHYRIA [None]
